FAERS Safety Report 10758296 (Version 3)
Quarter: 2015Q2

REPORT INFORMATION
  Report Type: Spontaneous
  Country: US (occurrence: US)
  Receive Date: 20150203
  Receipt Date: 20150428
  Transmission Date: 20150821
  Serious: Yes (Death, Other)
  Sender: FDA-Public Use
  Company Number: US-009507513-1502USA000547

PATIENT
  Sex: Male
  Weight: 82.99 kg

DRUGS (1)
  1. JANUVIA [Suspect]
     Active Substance: SITAGLIPTIN PHOSPHATE
     Indication: TYPE 2 DIABETES MELLITUS
     Dosage: 100 MG, QD
     Route: 048
     Dates: start: 20120217, end: 20140702

REACTIONS (18)
  - Hypersensitivity [Unknown]
  - Arthritis [Unknown]
  - Granuloma [Unknown]
  - Pancreatitis acute [Unknown]
  - Mesenteric vascular occlusion [Unknown]
  - Focal nodular hyperplasia [Unknown]
  - Drug ineffective [Unknown]
  - Adenocarcinoma pancreas [Fatal]
  - Tremor [Unknown]
  - Appendicectomy [Unknown]
  - Peripheral nerve operation [Unknown]
  - Metastases to liver [Unknown]
  - Neoplasm malignant [Unknown]
  - Diverticulum intestinal [Unknown]
  - Diabetes mellitus inadequate control [Unknown]
  - Musculoskeletal pain [Unknown]
  - Haemangioma of liver [Unknown]
  - Prostatic calcification [Unknown]

NARRATIVE: CASE EVENT DATE: 20120911
